FAERS Safety Report 4349983-9 (Version None)
Quarter: 2004Q2

REPORT INFORMATION
  Report Type: 
  Country: None (occurrence: None)
  Receive Date: 20040428
  Receipt Date: 20040428
  Transmission Date: 20050107
  Serious: Yes (Other)
  Sender: FDA-Public Use
  Company Number: None

PATIENT
  Sex: Male
  Weight: 104.3273 kg

DRUGS (1)
  1. MIRAPEX [Suspect]
     Dosage: 1.5MG 3XPER DAY ORAL
     Route: 048
     Dates: start: 19990601, end: 20030815

REACTIONS (1)
  - PATHOLOGICAL GAMBLING [None]
